FAERS Safety Report 6335167-1 (Version None)
Quarter: 2009Q3

REPORT INFORMATION
  Report Type: 
  Country: None (occurrence: None)
  Receive Date: 20090831
  Receipt Date: 20090807
  Transmission Date: 20100115
  Serious: Yes (Hospitalization, Other)
  Sender: FDA-Public Use
  Company Number: US-ALEXION-A200900635

PATIENT
  Sex: Female

DRUGS (5)
  1. SOLIRIS [Suspect]
     Indication: PAROXYSMAL NOCTURNAL HAEMOGLOBINURIA
     Dosage: 600 MG, QW X4
     Route: 042
     Dates: start: 20080710, end: 20080801
  2. SOLIRIS [Suspect]
     Dosage: 900 MG, Q2W
     Route: 042
     Dates: start: 20080807
  3. SOLIRIS [Suspect]
     Dosage: 900 MG, Q9D
     Route: 042
     Dates: start: 20090701
  4. SOLIRIS [Suspect]
     Dosage: 900 MG, SINGLE
     Route: 042
     Dates: start: 20090806, end: 20090806
  5. SOLIRIS [Suspect]
     Dosage: 900 MG, SINGLE, SUPPLEMENTAL DOSE
     Route: 042
     Dates: start: 20090808, end: 20090808

REACTIONS (7)
  - ARTHRALGIA [None]
  - FLUID RETENTION [None]
  - PNEUMONIA [None]
  - RESPIRATORY FAILURE [None]
  - SEPTIC SHOCK [None]
  - THROMBOSIS [None]
  - WHITE BLOOD CELL COUNT DECREASED [None]
